APPROVED DRUG PRODUCT: LORAZEPAM
Active Ingredient: LORAZEPAM
Strength: 2MG/ML
Dosage Form/Route: INJECTABLE;INJECTION
Application: A200542 | Product #001
Applicant: RISING PHARMA HOLDINGS INC
Approved: Apr 28, 2017 | RLD: No | RS: No | Type: DISCN